FAERS Safety Report 11591905 (Version 10)
Quarter: 2017Q1

REPORT INFORMATION
  Report Type: Report from Study
  Country: US (occurrence: US)
  Receive Date: 20151005
  Receipt Date: 20170201
  Transmission Date: 20170428
  Serious: Yes (Life-Threatening, Other)
  Sender: FDA-Public Use
  Company Number: US-ROCHE-1641435

PATIENT
  Age: 72 Year
  Sex: Male
  Weight: 81.37 kg

DRUGS (18)
  1. OMEGA-3 ACID ETHYL ESTERS [Concomitant]
     Active Substance: OMEGA-3-ACID ETHYL ESTERS
     Dosage: INDICATION: AS SUPPLEMENT
     Route: 048
     Dates: start: 20150629
  2. ATORVASTATIN [Concomitant]
     Active Substance: ATORVASTATIN
     Indication: HYPERLIPIDAEMIA
     Route: 048
     Dates: start: 20151022, end: 20151025
  3. LANTUS [Concomitant]
     Active Substance: INSULIN GLARGINE
     Dosage: 10 UNIT
     Route: 058
     Dates: start: 20151024, end: 20151024
  4. NEBIVOLOL. [Concomitant]
     Active Substance: NEBIVOLOL
     Indication: HYPERTENSION
     Route: 048
     Dates: start: 20120229
  5. MEGACE [Concomitant]
     Active Substance: MEGESTROL ACETATE
     Indication: DECREASED APPETITE
     Route: 048
     Dates: start: 20150730
  6. BEVACIZUMAB [Suspect]
     Active Substance: BEVACIZUMAB
     Indication: RENAL CELL CARCINOMA
     Dosage: DATE OF MOST RECENT DOSE OF BEVACIZUMAB: 09/SEP/2015
     Route: 042
     Dates: start: 20150909
  7. LANTUS [Concomitant]
     Active Substance: INSULIN GLARGINE
     Indication: HYPERGLYCAEMIA
     Dosage: 5 UNIT
     Route: 058
     Dates: start: 20151022, end: 20151022
  8. SULFAMETHOXAZOLE/TRIMETHOPRIM [Concomitant]
     Active Substance: SULFAMETHOXAZOLE\TRIMETHOPRIM
     Route: 048
     Dates: start: 20151026, end: 20151105
  9. FUROSEMIDE. [Concomitant]
     Active Substance: FUROSEMIDE
     Route: 042
     Dates: start: 20151021, end: 20151023
  10. INSULIN LISPRO [Concomitant]
     Active Substance: INSULIN LISPRO
     Indication: HYPERGLYCAEMIA
     Dosage: DOSE: 100 (UNIT: OTHER)
     Route: 058
     Dates: start: 20151023
  11. HUMALOG [Concomitant]
     Active Substance: INSULIN LISPRO
     Indication: HYPERGLYCAEMIA
     Dosage: 100 OTHER
     Route: 058
     Dates: start: 20151023, end: 20160123
  12. FUROSEMIDE. [Concomitant]
     Active Substance: FUROSEMIDE
     Route: 048
     Dates: start: 20151014
  13. FAMOTIDINE. [Concomitant]
     Active Substance: FAMOTIDINE
     Route: 048
     Dates: start: 20151013
  14. ROSUVASTATIN. [Concomitant]
     Active Substance: ROSUVASTATIN
     Indication: HYPERLIPIDAEMIA
     Route: 048
     Dates: start: 20120229
  15. LANTUS [Concomitant]
     Active Substance: INSULIN GLARGINE
     Dosage: 15 UNIT
     Route: 058
     Dates: start: 20151025, end: 20160123
  16. ATEZOLIZUMAB [Suspect]
     Active Substance: ATEZOLIZUMAB
     Indication: RENAL CELL CARCINOMA
     Dosage: DATE OF MOST RECENT DOSE: 09/SEP/2015
     Route: 042
     Dates: start: 20150909
  17. ASPIRIN EC [Concomitant]
     Active Substance: ASPIRIN
     Dosage: INDICATION: PROPHYLACTIC CARDIAC HEALTH
     Route: 048
     Dates: start: 20150629
  18. FUROSEMIDE. [Concomitant]
     Active Substance: FUROSEMIDE
     Indication: OEDEMA
     Route: 042
     Dates: start: 20151021, end: 20151021

REACTIONS (3)
  - Hypophosphataemia [Recovered/Resolved]
  - Hypercalcaemia [Recovered/Resolved]
  - Autoimmune hepatitis [Recovered/Resolved]

NARRATIVE: CASE EVENT DATE: 20150922
